FAERS Safety Report 16312468 (Version 1)
Quarter: 2019Q2

REPORT INFORMATION
  Report Type: Spontaneous
  Country: FR (occurrence: FR)
  Receive Date: 20190515
  Receipt Date: 20190515
  Transmission Date: 20190711
  Serious: Yes (Other)
  Sender: FDA-Public Use
  Company Number: FR-ZYDUS-036697

PATIENT
  Age: 42 Year
  Sex: Female

DRUGS (2)
  1. OPTIMIZETTE [Suspect]
     Active Substance: DESOGESTREL
     Indication: ORAL CONTRACEPTION
     Route: 048
     Dates: start: 2017, end: 20190418
  2. RAMIPRIL. [Suspect]
     Active Substance: RAMIPRIL
     Indication: HYPERTENSION
     Route: 048

REACTIONS (2)
  - Transient ischaemic attack [Recovered/Resolved]
  - Hypertension [Recovered/Resolved]

NARRATIVE: CASE EVENT DATE: 201902
